FAERS Safety Report 6964830-4 (Version None)
Quarter: 2010Q3

REPORT INFORMATION
  Report Type: 
  Country: None (occurrence: None)
  Receive Date: 20100903
  Receipt Date: 20100824
  Transmission Date: 20110219
  Serious: Yes (Other)
  Sender: FDA-Public Use
  Company Number: US-JNJFOC-20100703927

PATIENT
  Sex: Female

DRUGS (12)
  1. REMICADE [Suspect]
     Indication: RHEUMATOID ARTHRITIS
     Route: 042
  2. MTX [Concomitant]
     Indication: RHEUMATOID ARTHRITIS
     Route: 030
  3. XANAX [Concomitant]
     Route: 065
  4. HYDROCHLOROTHIAZIDE [Concomitant]
     Route: 065
  5. PRAVASTATIN [Concomitant]
     Route: 065
  6. NORVASC [Concomitant]
     Route: 065
  7. VESICARE [Concomitant]
     Route: 065
  8. FOLIC ACID [Concomitant]
     Indication: NUTRITIONAL SUPPORT
     Route: 065
  9. LOPRESSOR [Concomitant]
     Route: 065
  10. PROTONIX [Concomitant]
     Route: 065
  11. KLOR-CON [Concomitant]
     Indication: NUTRITIONAL SUPPORT
     Route: 065
  12. POTASSIUM CHLORIDE [Concomitant]
     Route: 065

REACTIONS (1)
  - CERVICAL DYSPLASIA [None]
